FAERS Safety Report 8406941-2 (Version None)
Quarter: 2012Q2

REPORT INFORMATION
  Report Type: 
  Country: None (occurrence: None)
  Receive Date: 20120604
  Receipt Date: 20120531
  Transmission Date: 20120825
  Serious: Yes (Other)
  Sender: FDA-Public Use
  Company Number: CA-ABBOTT-12P-028-0916953-00

PATIENT
  Sex: Female
  Weight: 82 kg

DRUGS (2)
  1. COMBIVIR [Concomitant]
     Indication: PRODUCT USED FOR UNKNOWN INDICATION
  2. KALETRA [Suspect]
     Indication: HIV INFECTION
     Route: 048
     Dates: start: 20100101, end: 20100101

REACTIONS (2)
  - PREMATURE LABOUR [None]
  - ABORTION SPONTANEOUS [None]
